FAERS Safety Report 20877154 (Version 1)
Quarter: 2022Q2

REPORT INFORMATION
  Report Type: Spontaneous
  Country: US (occurrence: None)
  Receive Date: 20220526
  Receipt Date: 20220526
  Transmission Date: 20220721
  Serious: Yes (Hospitalization)
  Sender: FDA-Public Use
  Company Number: None

PATIENT
  Age: 51 Year
  Sex: Female
  Weight: 73 kg

DRUGS (1)
  1. KETOROLAC TROMETHAMINE [Suspect]
     Active Substance: KETOROLAC TROMETHAMINE
     Indication: Chest pain
     Dosage: FREQUENCY : ONCE;?
     Route: 042
     Dates: start: 20220524, end: 20220524

REACTIONS (2)
  - Tachypnoea [None]
  - Hypotension [None]

NARRATIVE: CASE EVENT DATE: 20220524
